FAERS Safety Report 4733692-8 (Version None)
Quarter: 2005Q3

REPORT INFORMATION
  Report Type: 
  Country: None (occurrence: None)
  Receive Date: 20050729
  Receipt Date: 20050712
  Transmission Date: 20060218
  Serious: Yes (Hospitalization)
  Sender: FDA-Public Use
  Company Number: DE_050716415

PATIENT
  Age: 91 Year
  Sex: Female
  Weight: 47 kg

DRUGS (3)
  1. CYMBALTA [Suspect]
     Indication: DEPRESSION
     Dosage: 30 MG/1 DAY
     Dates: start: 20050408
  2. RAMICARD PLUS [Concomitant]
  3. LACTULOSE [Concomitant]

REACTIONS (3)
  - FACIAL PARESIS [None]
  - HYPERTENSIVE CRISIS [None]
  - LAGOPHTHALMOS [None]
